FAERS Safety Report 8612535-6 (Version None)
Quarter: 2012Q3

REPORT INFORMATION
  Report Type: 
  Country: None (occurrence: None)
  Receive Date: 20120822
  Receipt Date: 20111118
  Transmission Date: 20120928
  Serious: No
  Sender: FDA-Public Use
  Company Number: US-ASTRAZENECA-2011SE59968

PATIENT
  Age: 65 Year
  Sex: Female

DRUGS (1)
  1. SYMBICORT [Suspect]
     Route: 055

REACTIONS (7)
  - EMPHYSEMA [None]
  - DRUG DOSE OMISSION [None]
  - MALAISE [None]
  - CONDITION AGGRAVATED [None]
  - NASOPHARYNGITIS [None]
  - HYPOVENTILATION [None]
  - DYSPNOEA [None]
